FAERS Safety Report 24288093 (Version 1)
Quarter: 2024Q3

REPORT INFORMATION
  Report Type: Spontaneous
  Country: CN (occurrence: None)
  Receive Date: 20240905
  Receipt Date: 20240905
  Transmission Date: 20241016
  Serious: Yes (Hospitalization, Other)
  Sender: ASTRAZENECA
  Company Number: 2024A198226

PATIENT
  Age: 21449 Day
  Sex: Female
  Weight: 65 kg

DRUGS (1)
  1. ROSUVASTATIN CALCIUM [Suspect]
     Active Substance: ROSUVASTATIN CALCIUM
     Indication: Lipids decreased
     Route: 048
     Dates: start: 20240102, end: 20240620

REACTIONS (3)
  - Drug-induced liver injury [Recovering/Resolving]
  - Asthenia [Recovering/Resolving]
  - Abdominal discomfort [Recovering/Resolving]

NARRATIVE: CASE EVENT DATE: 20240614
